FAERS Safety Report 9456999 (Version 2)
Quarter: 2014Q2

REPORT INFORMATION
  Report Type: Spontaneous
  Country: US (occurrence: US)
  Receive Date: 20130814
  Receipt Date: 20140612
  Transmission Date: 20141212
  Serious: Yes (Hospitalization)
  Sender: FDA-Public Use
  Company Number: US-AMGEN-USASP2013055542

PATIENT
  Age: 63 Year
  Sex: Male
  Weight: 109 kg

DRUGS (12)
  1. NEUPOGEN [Suspect]
     Indication: HAEMATOPOIETIC STEM CELL MOBILISATION
     Dosage: 5 MCG/KG, TOTAL DOSE 1.82 ML, (1 IN 1 ONCE)
     Route: 058
     Dates: start: 20130718, end: 20130718
  2. NEUPOGEN [Suspect]
     Dosage: 5 MCG/KG, TOTAL DOSE 1.82 ML, (1 IN 1 ONCE)
     Route: 058
     Dates: start: 20130719, end: 20130719
  3. ATENOLOL [Concomitant]
     Indication: HYPERTENSION
     Dosage: 100 MG, 1 IN 1 D
     Route: 048
     Dates: start: 201305
  4. ATENOLOL [Concomitant]
     Indication: ANGINA PECTORIS
  5. IMDUR [Concomitant]
     Indication: ANGINA PECTORIS
     Dosage: 90 MG, 1 IN 1 D
     Route: 048
     Dates: start: 201305
  6. NORVASC [Concomitant]
     Indication: ANGINA PECTORIS
     Dosage: 10 MG, 1 IN 1 D
     Route: 048
     Dates: start: 201305
  7. ZOCOR [Concomitant]
     Indication: HYPERLIPIDAEMIA
     Dosage: 20 MG, 1 IN 1 D
     Route: 048
     Dates: start: 201201
  8. NITROSTAT [Concomitant]
     Indication: ANGINA PECTORIS
     Dosage: 0.6 MG, (1 IN 1 AS REQUIRED)
     Route: 060
     Dates: start: 201201
  9. PLAVIX [Concomitant]
     Indication: THERAPEUTIC PROCEDURE
     Dosage: 300 MG, 1 IN 1 ONCE
     Route: 048
     Dates: start: 20130718, end: 20130719
  10. PLAVIX [Concomitant]
     Indication: PROPHYLAXIS
     Dosage: 75 MG, 1 IN 1 D
     Route: 048
     Dates: start: 20130719
  11. HEPARIN [Concomitant]
     Indication: ACUTE MYOCARDIAL INFARCTION
     Dosage: UNK, CONTINUOUS TITRATED DRIP
     Route: 042
     Dates: start: 20130720, end: 20130721
  12. ASPIRIN [Concomitant]
     Indication: CORONARY ARTERY DISEASE
     Dosage: 81 MG, 1 IN 1 D
     Route: 048
     Dates: start: 201111

REACTIONS (1)
  - Acute myocardial infarction [Recovered/Resolved]
